FAERS Safety Report 16440395 (Version 1)
Quarter: 2019Q2

REPORT INFORMATION
  Report Type: Report from Study
  Country: NO (occurrence: NO)
  Receive Date: 20190617
  Receipt Date: 20190617
  Transmission Date: 20190711
  Serious: Yes (Death, Other)
  Sender: FDA-Public Use
  Company Number: NO-PFIZER INC-2019256789

PATIENT
  Age: 54 Year
  Sex: Male

DRUGS (6)
  1. CYCLOPHOSPHAMIDE. [Suspect]
     Active Substance: CYCLOPHOSPHAMIDE
     Indication: TESTICULAR GERM CELL TUMOUR
     Dosage: UNK UNK, CYCLIC
  2. ACTINOMYCIN D [Suspect]
     Active Substance: DACTINOMYCIN
     Indication: TESTICULAR GERM CELL TUMOUR
     Dosage: UNK UNK, CYCLIC
  3. VINBLASTIN [Suspect]
     Active Substance: VINBLASTINE
     Indication: TESTICULAR GERM CELL TUMOUR
     Dosage: UNK, CYCLIC (CUMULATIVE DOSE 200)
  4. CISPLATIN. [Suspect]
     Active Substance: CISPLATIN
     Indication: TESTICULAR GERM CELL TUMOUR
     Dosage: UNK, CYCLIC (CUMULATIVE DOSE 1400 MG)
  5. ADRIAMYCIN [Suspect]
     Active Substance: DOXORUBICIN HYDROCHLORIDE
     Indication: TESTICULAR GERM CELL TUMOUR
     Dosage: UNK UNK, CYCLIC
  6. VINCRISTINE SULFATE. [Suspect]
     Active Substance: VINCRISTINE SULFATE
     Indication: TESTICULAR GERM CELL TUMOUR
     Dosage: UNK UNK, CYCLIC

REACTIONS (3)
  - Peripheral artery stenosis [Fatal]
  - Polyneuropathy [Unknown]
  - Cardiac failure [Fatal]
